FAERS Safety Report 5777925 (Version 3)
Quarter: 2020Q3

REPORT INFORMATION
  Report Type: Report from Study
  Country: US (occurrence: US)
  Receive Date: 20050419
  Receipt Date: 20050627
  Transmission Date: 20201104
  Serious: Yes (Death, Hospitalization)
  Sender: FDA-Public Use
  Company Number: US-JNJFOC-20050403102

PATIENT
  Age: 33 Year
  Sex: Female
  Weight: 31 kg

DRUGS (10)
  1. CISAPRIDE [Suspect]
     Active Substance: CISAPRIDE
     Route: 049
  2. PHENOBARBITAL. [Concomitant]
     Active Substance: PHENOBARBITAL
  3. PROTONIX [Concomitant]
     Active Substance: PANTOPRAZOLE SODIUM
  4. TRANXENE T?TAB [Concomitant]
     Active Substance: CLORAZEPATE DIPOTASSIUM
  5. FERROUS SULFATE. [Concomitant]
     Active Substance: FERROUS SULFATE
     Indication: IRON DEFICIENCY
  6. CISAPRIDE [Suspect]
     Active Substance: CISAPRIDE
     Indication: GASTROOESOPHAGEAL REFLUX DISEASE
     Route: 049
  7. TEGRETOL [Concomitant]
     Active Substance: CARBAMAZEPINE
  8. DEPAKOTE [Concomitant]
     Active Substance: DIVALPROEX SODIUM
  9. SODIUM CHLORIDE. [Concomitant]
     Active Substance: SODIUM CHLORIDE
  10. FERROUS SULFATE. [Concomitant]
     Active Substance: FERROUS SULFATE

REACTIONS (3)
  - Pneumonia [Recovering/Resolving]
  - Pleural effusion [Fatal]
  - Aspiration [Fatal]

NARRATIVE: CASE EVENT DATE: 20050321
